FAERS Safety Report 10456628 (Version 1)
Quarter: 2014Q3

REPORT INFORMATION
  Report Type: Spontaneous
  Country: US (occurrence: US)
  Receive Date: 20140916
  Receipt Date: 20140916
  Transmission Date: 20150326
  Serious: Yes (Other)
  Sender: FDA-Public Use
  Company Number: PHHY2014US115869

PATIENT
  Age: 61 Year
  Sex: Female

DRUGS (1)
  1. WARFARIN [Suspect]
     Active Substance: WARFARIN
     Indication: PULMONARY HYPERTENSION

REACTIONS (10)
  - Vascular calcification [Unknown]
  - Skin ulcer [Not Recovered/Not Resolved]
  - Secretion discharge [Unknown]
  - Skin lesion [Unknown]
  - Extremity necrosis [Unknown]
  - Eschar [Unknown]
  - Skin mass [Unknown]
  - Calciphylaxis [Unknown]
  - Skin necrosis [Unknown]
  - Vascular occlusion [Unknown]
